FAERS Safety Report 13480453 (Version 1)
Quarter: 2017Q2

REPORT INFORMATION
  Report Type: Spontaneous
  Country: US (occurrence: US)
  Receive Date: 20170425
  Receipt Date: 20170425
  Transmission Date: 20170830
  Serious: Yes (Other)
  Sender: FDA-Public Use
  Company Number: PHEH2017US011755

PATIENT
  Sex: Male

DRUGS (2)
  1. AFINITOR [Suspect]
     Active Substance: EVEROLIMUS
     Indication: SOFT TISSUE SARCOMA
     Dosage: 7.5 MG, QD (DAILY ONCE)
     Route: 048
     Dates: start: 201610
  2. VOTRIENT [Suspect]
     Active Substance: PAZOPANIB HYDROCHLORIDE
     Indication: PRODUCT USED FOR UNKNOWN INDICATION
     Dosage: UNK
     Route: 065
     Dates: start: 201610

REACTIONS (6)
  - Cholecystitis [Unknown]
  - Pain [Unknown]
  - Deep vein thrombosis [Unknown]
  - Weight decreased [Unknown]
  - Laboratory test abnormal [Unknown]
  - Skin irritation [Unknown]
